FAERS Safety Report 4504626-6 (Version None)
Quarter: 2004Q4

REPORT INFORMATION
  Report Type: 
  Country: None (occurrence: None)
  Receive Date: 20041118
  Receipt Date: 20040630
  Transmission Date: 20050328
  Serious: Yes (Other)
  Sender: FDA-Public Use
  Company Number: PHEH2004US07121

PATIENT
  Age: 61 Year
  Sex: Female

DRUGS (8)
  1. ZOMETA [Suspect]
     Indication: METASTASES TO BONE
     Dosage: 4 MG, QMO
     Route: 042
     Dates: start: 20011219, end: 20040525
  2. ARIMIDEX [Concomitant]
     Dosage: 1 MG, QD
     Route: 048
     Dates: start: 20000101
  3. GLYBURIDE [Concomitant]
     Dosage: 5 MG, BID
  4. FLUOXETINE [Concomitant]
     Dosage: 20 MG, QD
  5. AMITRIPTYLINE HCL [Concomitant]
     Dosage: 75 MG, BID
  6. LISINOPRIL [Concomitant]
     Dosage: 10 MG, QD
  7. ASPIRIN [Concomitant]
     Dosage: 81 MG, QD
  8. PEPCID AC [Concomitant]
     Dosage: 10 MG, BID

REACTIONS (4)
  - ACTINOMYCOSIS [None]
  - OSTEOMYELITIS [None]
  - OSTEONECROSIS [None]
  - PAIN [None]
